FAERS Safety Report 9265533 (Version 1)
Quarter: 2013Q2

REPORT INFORMATION
  Report Type: Spontaneous
  Country: US (occurrence: US)
  Receive Date: 20130501
  Receipt Date: 20130501
  Transmission Date: 20140414
  Serious: No
  Sender: FDA-Public Use
  Company Number: US-PFIZER INC-2013131680

PATIENT
  Age: 55 Year
  Sex: Female
  Weight: 68.93 kg

DRUGS (1)
  1. TOLTERODINE TARTRATE [Suspect]
     Indication: URINARY INCONTINENCE
     Dosage: UNK
     Dates: start: 201302

REACTIONS (1)
  - Drug ineffective [Unknown]
